FAERS Safety Report 5912829-9 (Version None)
Quarter: 2008Q4

REPORT INFORMATION
  Report Type: 
  Country: None (occurrence: None)
  Receive Date: 20081006
  Receipt Date: 20080925
  Transmission Date: 20090506
  Serious: Yes (Other)
  Sender: FDA-Public Use
  Company Number: 2008SP019708

PATIENT
  Age: 64 Year
  Sex: Female
  Weight: 67 kg

DRUGS (5)
  1. DESLORATADINE [Suspect]
     Indication: DRUG USE FOR UNKNOWN INDICATION
     Dosage: 5 MG; PO
     Route: 048
  2. XYZAL [Suspect]
     Indication: DRUG USE FOR UNKNOWN INDICATION
     Dosage: 5 NG; PO
     Route: 048
  3. OTRIVIN [Suspect]
     Indication: DRUG USE FOR UNKNOWN INDICATION
     Dosage: ; NAS
     Route: 045
  4. FLUANXOL (FLUPENTIXOL) [Concomitant]
  5. PREDNISOLONE [Concomitant]

REACTIONS (4)
  - NASAL OEDEMA [None]
  - PHARYNGEAL OEDEMA [None]
  - RASH [None]
  - SWOLLEN TONGUE [None]
